FAERS Safety Report 5087564-2 (Version None)
Quarter: 2006Q3

REPORT INFORMATION
  Report Type: 
  Country: None (occurrence: None)
  Receive Date: 20060822
  Receipt Date: 20060822
  Transmission Date: 20061208
  Serious: Yes (Hospitalization)
  Sender: FDA-Public Use
  Company Number: None

PATIENT
  Age: 59 Year
  Sex: Male

DRUGS (13)
  1. PIPERACILLIN AND TAZOBACTAM [Suspect]
     Indication: BACTERAEMIA
     Dosage: 3.375 GM/50 ML 30 MIN INFUSION IV
     Route: 042
     Dates: start: 20060601, end: 20060604
  2. APAP TAB [Concomitant]
  3. APAP/OXYCODONE [Concomitant]
  4. ALLOPURINOL [Concomitant]
  5. DEXTROSE [Concomitant]
  6. HALOPERIDOL [Concomitant]
  7. FUROSEMIDE [Concomitant]
  8. INSULIN [Concomitant]
  9. LANSOPRAZOLE [Concomitant]
  10. HEPARIN [Concomitant]
  11. DEXAMETHASONE [Concomitant]
  12. LORAZEPAM [Concomitant]
  13. FENTANYL [Concomitant]

REACTIONS (1)
  - THROMBOCYTOPENIA [None]
